FAERS Safety Report 25663260 (Version 3)
Quarter: 2025Q3

REPORT INFORMATION
  Report Type: Spontaneous
  Country: EU (occurrence: EU)
  Receive Date: 20250811
  Receipt Date: 20250919
  Transmission Date: 20251021
  Serious: Yes (Hospitalization, Other)
  Sender: ABBVIE
  Company Number: EU-IPSEN Group, Research and Development-2025-16612

PATIENT
  Age: 35 Year
  Sex: Female
  Weight: 50 kg

DRUGS (5)
  1. BOTOX [Suspect]
     Active Substance: ONABOTULINUMTOXINA
     Indication: Hypertonic bladder
     Route: 065
  2. MELATONIN [Concomitant]
     Active Substance: MELATONIN
     Indication: Sleep disorder
  3. DYSPORT [Suspect]
     Active Substance: ABOBOTULINUMTOXINA
     Indication: Multiple sclerosis
     Route: 030
     Dates: start: 20250509, end: 20250509
  4. DYSPORT [Suspect]
     Active Substance: ABOBOTULINUMTOXINA
     Indication: Multiple sclerosis
     Route: 030
     Dates: start: 20250509
  5. PAROXETINE [Concomitant]
     Active Substance: PAROXETINE
     Indication: Depressed mood
     Route: 065
     Dates: start: 20250603

REACTIONS (4)
  - Lung disorder [Recovering/Resolving]
  - Multiple sclerosis relapse [Recovering/Resolving]
  - Dyspnoea [Unknown]
  - Botulism [Recovering/Resolving]

NARRATIVE: CASE EVENT DATE: 20250512
